FAERS Safety Report 6709649-4 (Version None)
Quarter: 2010Q2

REPORT INFORMATION
  Report Type: 
  Country: None (occurrence: None)
  Receive Date: 20100504
  Receipt Date: 20100426
  Transmission Date: 20101027
  Serious: Yes (Hospitalization)
  Sender: FDA-Public Use
  Company Number: ES-TEVA-170748ISR

PATIENT
  Sex: Female
  Weight: 75 kg

DRUGS (5)
  1. FLUOROURACIL [Suspect]
     Indication: COLORECTAL CANCER METASTATIC
     Route: 040
     Dates: start: 20080222, end: 20080414
  2. FOLINIC ACID [Suspect]
     Indication: COLORECTAL CANCER METASTATIC
     Route: 042
     Dates: start: 20080222, end: 20080412
  3. IRINOTECAN HYDROCHLORIDE [Suspect]
     Indication: COLORECTAL CANCER METASTATIC
     Route: 042
     Dates: start: 20080222, end: 20080412
  4. SUNITINIB (BLINDED THERAPY) [Suspect]
     Route: 048
     Dates: start: 20080223, end: 20080414
  5. IRON [Suspect]
     Route: 048
     Dates: start: 20080215

REACTIONS (3)
  - CARDIAC FAILURE [None]
  - NEUTROPENIA [None]
  - PULMONARY EMBOLISM [None]
